FAERS Safety Report 21438762 (Version 2)
Quarter: 2022Q4

REPORT INFORMATION
  Report Type: Spontaneous
  Country: SK (occurrence: SK)
  Receive Date: 20221011
  Receipt Date: 20221021
  Transmission Date: 20230112
  Serious: Yes (Hospitalization, Other)
  Sender: FDA-Public Use
  Company Number: SK-SUN PHARMACEUTICAL INDUSTRIES LTD-2022RR-358516

PATIENT
  Sex: Female

DRUGS (2)
  1. METHOTREXATE [Suspect]
     Active Substance: METHOTREXATE
     Indication: Rheumatoid arthritis
     Dosage: UNK
     Route: 065
  2. SULFASALAZINE [Suspect]
     Active Substance: SULFASALAZINE
     Indication: Rheumatoid arthritis
     Dosage: 2X 500 MG TBL
     Route: 065

REACTIONS (7)
  - Eosinophilic pneumonia [Unknown]
  - Pulmonary toxicity [Recovering/Resolving]
  - Polyserositis [Unknown]
  - Treatment failure [Unknown]
  - Serositis [Unknown]
  - Lupus-like syndrome [Recovered/Resolved]
  - Drug intolerance [Unknown]
